FAERS Safety Report 8197032-7 (Version None)
Quarter: 2012Q1

REPORT INFORMATION
  Report Type: 
  Country: None (occurrence: None)
  Receive Date: 20120309
  Receipt Date: 20120228
  Transmission Date: 20120608
  Serious: Yes (Hospitalization)
  Sender: FDA-Public Use
  Company Number: US-ELI_LILLY_AND_COMPANY-US201110007758

PATIENT
  Sex: Female

DRUGS (13)
  1. FORTEO [Suspect]
     Indication: OSTEOPOROSIS
     Dosage: 20 UG, QD
     Route: 065
     Dates: start: 20100101, end: 20111101
  2. LEVOTHYROXINE SODIUM [Concomitant]
  3. SIMILAC [Concomitant]
  4. POTASSIUM [Concomitant]
  5. NEXIUM [Concomitant]
  6. ISOSORBIDE DINITRATE [Concomitant]
  7. CELEBREX [Concomitant]
  8. CARVEDILOL [Concomitant]
  9. SIMVASTATIN [Concomitant]
  10. VITAMIN B-12 [Concomitant]
  11. ASPIRIN [Concomitant]
  12. FUROSEMIDE [Concomitant]
  13. STOOL SOFTENER [Concomitant]

REACTIONS (8)
  - DYSPHAGIA [None]
  - MUSCULOSKELETAL PAIN [None]
  - VOMITING [None]
  - GASTROINTESTINAL DISORDER [None]
  - HYPOKINESIA [None]
  - OEDEMA PERIPHERAL [None]
  - OESOPHAGEAL FOOD IMPACTION [None]
  - PAIN IN EXTREMITY [None]
